FAERS Safety Report 6163608-1 (Version None)
Quarter: 2009Q2

REPORT INFORMATION
  Report Type: 
  Country: None (occurrence: None)
  Receive Date: 20090422
  Receipt Date: 20090408
  Transmission Date: 20091009
  Serious: Yes (Hospitalization)
  Sender: FDA-Public Use
  Company Number: FR-ROCHE-626411

PATIENT
  Sex: Male
  Weight: 62 kg

DRUGS (4)
  1. MYCOPHENOLATE MOFETIL [Suspect]
     Indication: LIVER TRANSPLANT
     Route: 048
     Dates: start: 20081003
  2. MYCOPHENOLATE MOFETIL [Suspect]
     Dosage: DOSE REDUCED
     Route: 048
     Dates: start: 20090320
  3. TACROLIMUS [Concomitant]
     Dosage: TDD: 2,5 MG
     Dates: start: 20090207
  4. OMEPRAZOLE [Concomitant]

REACTIONS (1)
  - FEBRILE NEUTROPENIA [None]
